FAERS Safety Report 5962485-9 (Version None)
Quarter: 2008Q4

REPORT INFORMATION
  Report Type: 
  Country: None (occurrence: None)
  Receive Date: 20081121
  Receipt Date: 20081113
  Transmission Date: 20090506
  Serious: Yes (Hospitalization)
  Sender: FDA-Public Use
  Company Number: JP-PFIZER INC-2008089582

PATIENT
  Sex: Male
  Weight: 49.1 kg

DRUGS (8)
  1. SOLU-CORTEF [Suspect]
     Indication: SUDDEN HEARING LOSS
     Dosage: DAILY DOSE:500MG
     Route: 042
     Dates: start: 20070821
  2. ADETPHOS [Concomitant]
     Dates: start: 20070821, end: 20080822
  3. CARDIAC THERAPY [Concomitant]
  4. MEVALOTIN [Concomitant]
     Route: 048
     Dates: start: 20050101
  5. ADALAT CC [Concomitant]
     Route: 048
     Dates: start: 20050101
  6. CARDENALIN [Concomitant]
     Route: 048
     Dates: start: 20050101
  7. MICARDIS [Concomitant]
     Route: 048
     Dates: start: 20050101
  8. LASIX [Concomitant]
     Route: 048
     Dates: start: 20050101

REACTIONS (1)
  - ACUTE CORONARY SYNDROME [None]
